FAERS Safety Report 22092732 (Version 1)
Quarter: 2023Q1

REPORT INFORMATION
  Report Type: Spontaneous
  Country: IT (occurrence: IT)
  Receive Date: 20230314
  Receipt Date: 20230314
  Transmission Date: 20230417
  Serious: Yes (Death)
  Sender: FDA-Public Use
  Company Number: IT-GRUNENTHAL-2023-101381

PATIENT
  Age: 75 Year
  Sex: Male

DRUGS (2)
  1. TRAMADOL [Suspect]
     Active Substance: TRAMADOL
     Indication: Product used for unknown indication
     Dosage: UNK
     Route: 065
  2. CHLORPROMAZINE [Concomitant]
     Active Substance: CHLORPROMAZINE
     Indication: Sedative therapy
     Dosage: UNK
     Route: 065

REACTIONS (3)
  - Death [Fatal]
  - Agitation [Unknown]
  - Therapeutic product effect incomplete [Unknown]
